FAERS Safety Report 19071269 (Version 3)
Quarter: 2021Q2

REPORT INFORMATION
  Report Type: Report from Study
  Country: CA (occurrence: CA)
  Receive Date: 20210330
  Receipt Date: 20210407
  Transmission Date: 20210717
  Serious: Yes (Other)
  Sender: FDA-Public Use
  Company Number: CA-JNJFOC-20210212854

PATIENT
  Sex: Female

DRUGS (2)
  1. REMICADE [Suspect]
     Active Substance: INFLIXIMAB
     Route: 042
  2. REMICADE [Suspect]
     Active Substance: INFLIXIMAB
     Indication: COLITIS ULCERATIVE
     Dosage: PHYSICIAN REQUESTED STAT DOSE, THEN 300 MG IV EVERY 5 WEEKS. RELOAD ON 04?FEB?2021 WITH Q5 WEEK?24 T
     Route: 042
     Dates: start: 20180926

REACTIONS (4)
  - Haematochezia [Unknown]
  - Malaise [Unknown]
  - Diarrhoea [Unknown]
  - Drug ineffective [Unknown]
